FAERS Safety Report 15862834 (Version 1)
Quarter: 2019Q1

REPORT INFORMATION
  Report Type: Spontaneous
  Country: US (occurrence: US)
  Receive Date: 20190124
  Receipt Date: 20190124
  Transmission Date: 20190417
  Serious: No
  Sender: FDA-Public Use
  Company Number: None

PATIENT
  Sex: Female

DRUGS (2)
  1. AMITRIPTYLINE 25MG [Suspect]
     Active Substance: AMITRIPTYLINE
  2. AMITRIPTYLINE 50MG [Suspect]
     Active Substance: AMITRIPTYLINE

REACTIONS (1)
  - Headache [None]
